FAERS Safety Report 14081356 (Version 4)
Quarter: 2018Q1

REPORT INFORMATION
  Report Type: Spontaneous
  Country: US (occurrence: US)
  Receive Date: 20171012
  Receipt Date: 20180108
  Transmission Date: 20180508
  Serious: Yes (Death)
  Sender: FDA-Public Use
  Company Number: US-ACTELION-A-US2017-160731

PATIENT
  Age: 11 Month
  Sex: Female

DRUGS (6)
  1. TRACLEER [Suspect]
     Active Substance: BOSENTAN
     Dosage: 15.625 MG, BID
     Route: 048
     Dates: start: 20170801
  2. REMODULIN [Suspect]
     Active Substance: TREPROSTINIL
     Indication: PRODUCT USED FOR UNKNOWN INDICATION
     Dosage: 91 NG/KG, PER MIN
     Route: 065
  3. SILDENAFIL. [Concomitant]
     Active Substance: SILDENAFIL
     Indication: PULMONARY ARTERIAL HYPERTENSION
     Dosage: 5 MG, UNK
  4. REMODULIN [Suspect]
     Active Substance: TREPROSTINIL
     Dosage: 91 UNK, UNK
     Route: 058
  5. TRACLEER [Suspect]
     Active Substance: BOSENTAN
     Indication: PULMONARY ARTERIAL HYPERTENSION
     Dosage: 15 UNK, UNK
     Route: 048
     Dates: start: 201706
  6. LASIX [Concomitant]
     Active Substance: FUROSEMIDE
     Dosage: 15 MG, UNK

REACTIONS (7)
  - Condition aggravated [Fatal]
  - Vomiting [Unknown]
  - Pulmonary hypertension [Fatal]
  - Alveolar proteinosis [Fatal]
  - Hypoxia [Fatal]
  - Acute respiratory failure [Fatal]
  - Upper respiratory tract infection [Fatal]

NARRATIVE: CASE EVENT DATE: 20171004
